FAERS Safety Report 8128267-7 (Version None)
Quarter: 2012Q1

REPORT INFORMATION
  Report Type: 
  Country: None (occurrence: None)
  Receive Date: 20120210
  Receipt Date: 20120208
  Transmission Date: 20120608
  Serious: Yes (Other)
  Sender: FDA-Public Use
  Company Number: CA-ROCHE-1038625

PATIENT
  Sex: Male
  Weight: 97.61 kg

DRUGS (8)
  1. XELODA [Suspect]
     Indication: GASTRIC CANCER
     Route: 048
  2. SYNTHROID [Concomitant]
  3. VITAMIN B-12 [Concomitant]
  4. XELODA [Suspect]
     Route: 048
  5. HERCEPTIN [Suspect]
     Indication: GASTRIC CANCER
     Route: 042
  6. CARBOPLATIN [Concomitant]
  7. EPREX [Concomitant]
  8. LYRICA [Concomitant]

REACTIONS (2)
  - PLATELET COUNT DECREASED [None]
  - RED BLOOD CELL COUNT DECREASED [None]
